FAERS Safety Report 11271252 (Version 1)
Quarter: 2015Q3

REPORT INFORMATION
  Report Type: Spontaneous
  Country: GB (occurrence: GB)
  Receive Date: 20150714
  Receipt Date: 20150714
  Transmission Date: 20151125
  Serious: Yes (Hospitalization, Other)
  Sender: FDA-Public Use
  Company Number: PHHY2015GB080405

PATIENT
  Age: 58 Year
  Sex: Male
  Weight: 77.11 kg

DRUGS (2)
  1. PROPRANOLOL HYDROCHLORIDE. [Suspect]
     Active Substance: PROPRANOLOL HYDROCHLORIDE
     Indication: ANXIETY
     Dosage: 40 MG, BID
     Route: 048
     Dates: start: 20150505, end: 20150510
  2. PRO-BANTHINE [Suspect]
     Active Substance: PROPANTHELINE BROMIDE
     Indication: PRODUCT USED FOR UNKNOWN INDICATION
     Dosage: 3 X15MG TABLETS FIRST THING IN THE MORNING AND AS NEEDED DURING THE DAY
     Route: 065

REACTIONS (3)
  - Drug interaction [Unknown]
  - Mental disorder [Recovered/Resolved]
  - Emotional disorder [Recovered/Resolved]

NARRATIVE: CASE EVENT DATE: 20150506
